FAERS Safety Report 6387426-4 (Version None)
Quarter: 2009Q3

REPORT INFORMATION
  Report Type: 
  Country: None (occurrence: None)
  Receive Date: 20090930
  Receipt Date: 20090918
  Transmission Date: 20100115
  Serious: Yes (Other)
  Sender: FDA-Public Use
  Company Number: 235278K09USA

PATIENT
  Age: 57 Year
  Sex: Female

DRUGS (7)
  1. REBIF [Suspect]
     Indication: MULTIPLE SCLEROSIS
     Dosage: 44 MCG, 3 IN 1 WEEKS, SUBCUTANEOUS
     Route: 058
     Dates: start: 20051209, end: 20081108
  2. REBIF [Suspect]
     Indication: MULTIPLE SCLEROSIS
     Dosage: 44 MCG, 3 IN 1 WEEKS, SUBCUTANEOUS
     Route: 058
     Dates: start: 20090506, end: 20090901
  3. LIPITOR [Concomitant]
  4. BACLOFEN [Concomitant]
  5. AMITRIPTYLINE HYDROCHLORIDE [Concomitant]
  6. HYDROCODONE (HYDROCODONE) [Concomitant]
  7. UNSPECIFIED MEDICATIONS (ALL OTHER THERAPEUTIC PRODUCTS) [Concomitant]

REACTIONS (3)
  - CONVULSION [None]
  - MALAISE [None]
  - PYREXIA [None]
